FAERS Safety Report 5536677-7 (Version None)
Quarter: 2007Q4

REPORT INFORMATION
  Report Type: 
  Country: None (occurrence: None)
  Receive Date: 20071206
  Receipt Date: 20070629
  Transmission Date: 20080405
  Serious: Yes (Hospitalization)
  Sender: FDA-Public Use
  Company Number: US-AMGEN-STX227742

PATIENT
  Sex: Female
  Weight: 92.2 kg

DRUGS (4)
  1. ENBREL [Suspect]
     Indication: RHEUMATOID ARTHRITIS
     Route: 058
     Dates: start: 20030101
  2. FLUOXETINE [Concomitant]
     Dates: start: 19990101
  3. LEVOTHYROXINE SODIUM [Concomitant]
     Dates: start: 19960101
  4. MICARDIS [Concomitant]

REACTIONS (1)
  - APPENDICITIS PERFORATED [None]
